FAERS Safety Report 12860322 (Version 1)
Quarter: 2016Q4

REPORT INFORMATION
  Report Type: Spontaneous
  Country: US (occurrence: US)
  Receive Date: 20161019
  Receipt Date: 20161019
  Transmission Date: 20170207
  Serious: Yes (Other)
  Sender: FDA-Public Use
  Company Number: US-BELCHER PHARMACEUTICALS, LLC-2016VTS00201

PATIENT
  Age: 45 Year
  Sex: Female
  Weight: 53.97 kg

DRUGS (2)
  1. HYOSCYAMINE SULFATE SL [Suspect]
     Active Substance: HYOSCYAMINE SULFATE
     Indication: NAUSEA
     Dosage: 0.125 MG, 3 DOSES UNK
     Route: 060
     Dates: start: 20160415, end: 201604
  2. HYOSCYAMINE SULFATE SL [Suspect]
     Active Substance: HYOSCYAMINE SULFATE
     Indication: ABDOMINAL PAIN UPPER

REACTIONS (3)
  - Abdominal pain [Recovered/Resolved]
  - Hepatobiliary scan abnormal [Recovered/Resolved]
  - Cholecystectomy [Recovered/Resolved]

NARRATIVE: CASE EVENT DATE: 2016
